FAERS Safety Report 6795217-5 (Version None)
Quarter: 2010Q2

REPORT INFORMATION
  Report Type: 
  Country: None (occurrence: None)
  Receive Date: 20100624
  Receipt Date: 20100624
  Transmission Date: 20101027
  Serious: Yes (Life-Threatening)
  Sender: FDA-Public Use
  Company Number: None

PATIENT

DRUGS (1)
  1. PULMICORT FLEXHALER [Suspect]
     Dates: start: 20090601, end: 20100530

REACTIONS (5)
  - DYSPNOEA [None]
  - HEADACHE [None]
  - NO THERAPEUTIC RESPONSE [None]
  - PRODUCT SUBSTITUTION ISSUE [None]
  - WHEEZING [None]
